FAERS Safety Report 18430028 (Version 1)
Quarter: 2020Q4

REPORT INFORMATION
  Report Type: Spontaneous
  Country: US (occurrence: US)
  Receive Date: 20201026
  Receipt Date: 20201026
  Transmission Date: 20210114
  Serious: No
  Sender: FDA-Public Use
  Company Number: US-US-PROVELL PHARMACEUTICALS LLC-9192042

PATIENT
  Sex: Female

DRUGS (1)
  1. EUTHYROX [Suspect]
     Active Substance: LEVOTHYROXINE SODIUM
     Indication: POST PROCEDURAL HYPOTHYROIDISM
     Dosage: 2 DOSAGE FORMS ONCE DAILY
     Dates: start: 2020

REACTIONS (6)
  - Fatigue [Unknown]
  - Thyroxine abnormal [Unknown]
  - Hyperhidrosis [Unknown]
  - Tri-iodothyronine abnormal [Unknown]
  - Blood thyroid stimulating hormone abnormal [Unknown]
  - Chest discomfort [Unknown]

NARRATIVE: CASE EVENT DATE: 2020
